FAERS Safety Report 10236768 (Version 1)
Quarter: 2014Q2

REPORT INFORMATION
  Report Type: Spontaneous
  Country: GR (occurrence: GR)
  Receive Date: 20140613
  Receipt Date: 20140613
  Transmission Date: 20141212
  Serious: Yes (Hospitalization)
  Sender: FDA-Public Use
  Company Number: GR-GLAXOSMITHKLINE-B1002957A

PATIENT
  Age: 52 Year
  Sex: Female

DRUGS (4)
  1. ROSIGLITAZONE [Suspect]
     Indication: DIABETES MELLITUS
     Route: 065
  2. METFORMIN [Suspect]
     Indication: DIABETES MELLITUS
     Route: 065
  3. PRAVASTATIN [Concomitant]
     Indication: HYPERLIPIDAEMIA
  4. LEVOTHYROXINE [Concomitant]
     Indication: HYPOTHYROIDISM

REACTIONS (7)
  - Hepatitis cholestatic [Recovered/Resolved]
  - Pruritus [Unknown]
  - Jaundice [Unknown]
  - Chromaturia [Unknown]
  - Faeces discoloured [Unknown]
  - Ocular icterus [Unknown]
  - Xanthelasma [Unknown]
